FAERS Safety Report 7543016-9 (Version None)
Quarter: 2011Q2

REPORT INFORMATION
  Report Type: 
  Country: None (occurrence: None)
  Receive Date: 20110613
  Receipt Date: 20110607
  Transmission Date: 20111010
  Serious: Yes (Other)
  Sender: FDA-Public Use
  Company Number: PHHO2011US00838

PATIENT
  Sex: Female
  Weight: 77.3 kg

DRUGS (1)
  1. IMATINIB MESYLATE [Suspect]
     Indication: PULMONARY ARTERIAL HYPERTENSION
     Dosage: 400 MG, QD
     Route: 048
     Dates: start: 20101202, end: 20110110

REACTIONS (7)
  - PAIN IN EXTREMITY [None]
  - NEUTROPENIA [None]
  - VENOUS THROMBOSIS [None]
  - DIARRHOEA [None]
  - LEUKOPENIA [None]
  - PYREXIA [None]
  - CORYNEBACTERIUM INFECTION [None]
